FAERS Safety Report 6826260-5 (Version None)
Quarter: 2010Q3

REPORT INFORMATION
  Report Type: 
  Country: None (occurrence: None)
  Receive Date: 20100709
  Receipt Date: 20100628
  Transmission Date: 20110219
  Serious: Yes (Other)
  Sender: FDA-Public Use
  Company Number: PHHY2010US42440

PATIENT
  Sex: Female

DRUGS (1)
  1. EXJADE [Suspect]
     Indication: BLOOD DISORDER
     Dosage: 1125 MG, QD
     Route: 048
     Dates: start: 20080915, end: 20100601

REACTIONS (2)
  - ACUTE MYELOID LEUKAEMIA [None]
  - TREATMENT NONCOMPLIANCE [None]
